FAERS Safety Report 9883581 (Version 2)
Quarter: 2014Q1

REPORT INFORMATION
  Report Type: Spontaneous
  Country: US (occurrence: US)
  Receive Date: 20140210
  Receipt Date: 20140314
  Transmission Date: 20141002
  Serious: Yes (Death)
  Sender: FDA-Public Use
  Company Number: US-AMGEN-USASP2014008317

PATIENT
  Age: 85 Year
  Sex: Female
  Weight: 43.72 kg

DRUGS (6)
  1. PROLIA [Suspect]
     Indication: OSTEOPOROSIS
     Dosage: 60 MG, Q6MO
     Route: 058
     Dates: start: 20120913
  2. LEVOTHYROXINE [Concomitant]
     Indication: HYPOTHYROIDISM
     Dosage: 39 MG, QD
     Route: 048
     Dates: start: 2008
  3. RELISTOR [Concomitant]
     Indication: CONSTIPATION
     Dosage: 8 MG, QD
     Route: 058
     Dates: start: 20130924
  4. OXYCODONE [Concomitant]
     Indication: PAIN
     Dosage: 5 MG, AS NECESSARY
     Route: 048
     Dates: start: 20130628, end: 20131016
  5. MSIR [Concomitant]
     Indication: PAIN
     Dosage: 15 MG, AS NECESSARY
     Route: 048
     Dates: start: 20131016
  6. REMERON [Concomitant]

REACTIONS (4)
  - Hyponatraemia [Fatal]
  - Musculoskeletal chest pain [Unknown]
  - Pain [Unknown]
  - Back pain [Unknown]
